FAERS Safety Report 5827240-9 (Version None)
Quarter: 2008Q3

REPORT INFORMATION
  Report Type: 
  Country: None (occurrence: None)
  Receive Date: 20080730
  Receipt Date: 20080722
  Transmission Date: 20090109
  Serious: Yes (Hospitalization)
  Sender: FDA-Public Use
  Company Number: GB-ROCHE-576975

PATIENT
  Sex: Female
  Weight: 123.8 kg

DRUGS (3)
  1. ORLISTAT [Suspect]
     Indication: OBESITY
     Route: 048
     Dates: start: 20070129, end: 20080708
  2. ASPIRIN [Concomitant]
     Route: 048
  3. DIGOXIN [Concomitant]
     Route: 048

REACTIONS (2)
  - RASH GENERALISED [None]
  - TYPE 2 DIABETES MELLITUS [None]
